FAERS Safety Report 9816791 (Version 1)
Quarter: 2014Q1

REPORT INFORMATION
  Report Type: Spontaneous
  Country: US (occurrence: US)
  Receive Date: 20140114
  Receipt Date: 20140114
  Transmission Date: 20141002
  Serious: No
  Sender: FDA-Public Use
  Company Number: US-ENDO PHARMACEUTICALS INC.-PERC20130047

PATIENT
  Sex: Male

DRUGS (2)
  1. PERCOCET [Suspect]
     Indication: PAIN
     Dosage: UNKNOWN
     Route: 048
  2. OXYCONTIN [Suspect]
     Indication: PAIN
     Dosage: UNKNOWN
     Route: 048

REACTIONS (2)
  - Adverse event [Not Recovered/Not Resolved]
  - Drug ineffective [Not Recovered/Not Resolved]
